FAERS Safety Report 5559959-1 (Version None)
Quarter: 2007Q4

REPORT INFORMATION
  Report Type: 
  Country: None (occurrence: None)
  Receive Date: 20071214
  Receipt Date: 20071022
  Transmission Date: 20080405
  Serious: Yes (Hospitalization)
  Sender: FDA-Public Use
  Company Number: US-ABBOTT-07P-163-0421615-00

PATIENT
  Sex: Female
  Weight: 54.48 kg

DRUGS (2)
  1. HUMIRA [Suspect]
     Indication: RHEUMATOID ARTHRITIS
     Route: 058
     Dates: start: 20070101
  2. FLU SHOT [Concomitant]
     Indication: PROPHYLAXIS
     Route: 050
     Dates: start: 20071017, end: 20071017

REACTIONS (4)
  - CORONARY ARTERY DISEASE [None]
  - DIVERTICULUM [None]
  - INFLUENZA LIKE ILLNESS [None]
  - RENAL DISORDER [None]
